FAERS Safety Report 7283679-9 (Version None)
Quarter: 2011Q1

REPORT INFORMATION
  Report Type: 
  Country: None (occurrence: None)
  Receive Date: 20110204
  Receipt Date: 20110204
  Transmission Date: 20110831
  Serious: Yes (Other)
  Sender: FDA-Public Use
  Company Number: None

PATIENT
  Age: 72 Year
  Sex: Male
  Weight: 88.4514 kg

DRUGS (1)
  1. CARVEDILOL [Suspect]
     Indication: HYPERTENSION
     Dosage: 1 TABLET TWICE DAILY PO
     Route: 048
     Dates: start: 20100310, end: 20100520

REACTIONS (11)
  - DIZZINESS [None]
  - ASTHENIA [None]
  - COUGH [None]
  - OEDEMA PERIPHERAL [None]
  - CHROMATURIA [None]
  - NAUSEA [None]
  - DRY MOUTH [None]
  - CIRCUMORAL OEDEMA [None]
  - PERIPHERAL COLDNESS [None]
  - TREMOR [None]
  - POLLAKIURIA [None]
